FAERS Safety Report 9393295 (Version 1)
Quarter: 2013Q3

REPORT INFORMATION
  Report Type: Spontaneous
  Country: US (occurrence: US)
  Receive Date: 20130710
  Receipt Date: 20130710
  Transmission Date: 20140515
  Serious: Yes (Other)
  Sender: FDA-Public Use
  Company Number: US-MYLANLABS-2013S1014487

PATIENT
  Age: 66 Year
  Sex: Male

DRUGS (5)
  1. JAKAFI [Suspect]
     Indication: MYELOFIBROSIS
     Route: 065
  2. PREDNISONE [Suspect]
     Indication: MYELOFIBROSIS
     Dosage: 5MG DAILY INCREASED TO 40MG DAILY
     Route: 065
  3. PREDNISONE [Suspect]
     Indication: MYELOFIBROSIS
     Dosage: 40MG DAILY
     Route: 065
  4. FLUCONAZOLE [Interacting]
     Indication: PNEUMONIA CRYPTOCOCCAL
     Dosage: LOADING DOSE, FOLLOWED BY 400MG DAILY
     Route: 048
  5. FLUCONAZOLE [Interacting]
     Indication: PNEUMONIA CRYPTOCOCCAL
     Dosage: 400MG DAILY
     Route: 048

REACTIONS (3)
  - Pneumonia cryptococcal [Recovering/Resolving]
  - Thrombocytopenia [Unknown]
  - Drug interaction [Unknown]
